FAERS Safety Report 19818195 (Version 1)
Quarter: 2021Q3

REPORT INFORMATION
  Report Type: Report from Study
  Country: DE (occurrence: DE)
  Receive Date: 20210911
  Receipt Date: 20210911
  Transmission Date: 20211014
  Serious: Yes (Hospitalization, Other)
  Sender: FDA-Public Use
  Company Number: DE-TEVA-2021-DE-1950699

PATIENT
  Age: 50 Year
  Sex: Female

DRUGS (32)
  1. BACLOFEN. [Concomitant]
     Active Substance: BACLOFEN
     Dosage: 10 MG ? 15 MG ? 25 MG
  2. AMITRIPTYLINE [Suspect]
     Active Substance: AMITRIPTYLINE
     Dosage: 10MG
     Route: 065
  3. DICLOFENAC [Suspect]
     Active Substance: DICLOFENAC
     Indication: BACK PAIN
     Dosage: 100MG; RETARD
     Route: 048
     Dates: start: 20190122
  4. OCREVUS [Suspect]
     Active Substance: OCRELIZUMAB
     Indication: RELAPSING-REMITTING MULTIPLE SCLEROSIS
     Dosage: 600MG
     Route: 042
     Dates: start: 20200609
  5. RAMIPRIL. [Concomitant]
     Active Substance: RAMIPRIL
     Dosage: 2.5 MILLIGRAM DAILY; 1?0?0
  6. FOLSAN [Concomitant]
     Active Substance: FOLIC ACID
     Dosage: 5MG
  7. CARBAMAZEPINE. [Concomitant]
     Active Substance: CARBAMAZEPINE
     Dosage: 400 MILLIGRAM DAILY; 1?0?0
     Route: 048
  8. ASPIRIN. [Concomitant]
     Active Substance: ASPIRIN
     Dosage: 100MG
     Route: 048
  9. OCREVUS [Suspect]
     Active Substance: OCRELIZUMAB
     Dosage: 300MG
     Route: 042
     Dates: start: 20180503, end: 20180503
  10. NOVOPULMON [Concomitant]
     Active Substance: BUDESONIDE
     Dosage: 2 HUBS PER DAY; 2DF
  11. BACLOFEN. [Concomitant]
     Active Substance: BACLOFEN
     Dosage: 10 MG ? 5 MG ? 20 MG
  12. OCREVUS [Suspect]
     Active Substance: OCRELIZUMAB
     Dosage: SECOND DOSE; 300MG
     Route: 042
     Dates: start: 20180517, end: 20180517
  13. PANTOPRAZOL [PANTOPRAZOLE] [Concomitant]
     Active Substance: PANTOPRAZOLE
     Dosage: 40 MILLIGRAM DAILY; 1?0?0
     Route: 048
  14. DEKRISTOL [Concomitant]
     Active Substance: CHOLECALCIFEROL
     Indication: VITAMIN D DEFICIENCY
     Dosage: 20000IU
  15. MAGNESIUM [Concomitant]
     Active Substance: MAGNESIUM
     Indication: MUSCLE SPASMS
     Dosage: 400 MILLIGRAM DAILY; 0?1?0
  16. RAMIPRIL. [Concomitant]
     Active Substance: RAMIPRIL
     Indication: HYPERTENSION
     Dosage: 20 MILLIGRAM DAILY; 1?0?1
  17. BACLOFEN. [Concomitant]
     Active Substance: BACLOFEN
     Indication: MUSCLE SPASTICITY
     Dosage: 10 MG ? 15 MG ? 25 MG
  18. BACLOFEN. [Concomitant]
     Active Substance: BACLOFEN
     Dosage: 25MG
  19. AMITRIPTYLINE [Suspect]
     Active Substance: AMITRIPTYLINE
     Indication: PRODUCT USED FOR UNKNOWN INDICATION
     Dosage: 50 MILLIGRAM DAILY; 0?0?1
     Route: 065
  20. OCREVUS [Suspect]
     Active Substance: OCRELIZUMAB
     Dosage: NEXT DOSE ON 09/JUN/2020; 600MG
     Route: 042
     Dates: start: 20181106
  21. ACICLOVIR [Concomitant]
     Active Substance: ACYCLOVIR
     Dosage: 1?0?1 FOR FOUR WEEKS
  22. ACICLOVIR [Concomitant]
     Active Substance: ACYCLOVIR
     Dosage: UNK, BID (1?0?1 FOR FOUR WEEKS)
  23. CARBAMAZEPINE. [Concomitant]
     Active Substance: CARBAMAZEPINE
     Dosage: 400 MILLIGRAM DAILY; 0?1?0
  24. BACLOFEN. [Concomitant]
     Active Substance: BACLOFEN
     Dosage: 75MG
  25. BACLOFEN. [Concomitant]
     Active Substance: BACLOFEN
     Dosage: 15 MG ? 15 MG ? 25 MG
     Route: 048
  26. DICLOFENAC [Suspect]
     Active Substance: DICLOFENAC
     Indication: ARTHRALGIA
     Dosage: RETARD
     Route: 054
  27. OCREVUS [Suspect]
     Active Substance: OCRELIZUMAB
     Dosage: 600MG
     Route: 042
     Dates: start: 20201207
  28. ZINC. [Concomitant]
     Active Substance: ZINC
     Dosage: 400MG
  29. SELENIUM [Concomitant]
     Active Substance: SELENIUM
  30. FOLVERLAN [Concomitant]
     Active Substance: FOLIC ACID
     Dosage: 0.4MG
  31. CARBAMAZEPINE. [Concomitant]
     Active Substance: CARBAMAZEPINE
     Dosage: 2?0?1; UNIT DOSE: 200MG
     Dates: start: 20190801
  32. BACLOFEN. [Concomitant]
     Active Substance: BACLOFEN
     Dosage: 2?2?3; UNIT DOSE: 5MG

REACTIONS (41)
  - Dyspepsia [Not Recovered/Not Resolved]
  - Muscle spasticity [Not Recovered/Not Resolved]
  - Chondropathy [Not Recovered/Not Resolved]
  - Paraesthesia [Recovered/Resolved]
  - Norovirus infection [Recovered/Resolved]
  - Acquired diaphragmatic eventration [Not Recovered/Not Resolved]
  - Insomnia [Recovered/Resolved]
  - Nasopharyngitis [Not Recovered/Not Resolved]
  - Back pain [Recovered/Resolved]
  - Therapeutic product effect decreased [Recovered/Resolved]
  - Rash [Recovered/Resolved]
  - Infection [Recovered/Resolved]
  - Arthralgia [Not Recovered/Not Resolved]
  - Effusion [Not Recovered/Not Resolved]
  - Abdominal pain upper [Recovered/Resolved]
  - Skin laceration [Recovered/Resolved]
  - Chest discomfort [Not Recovered/Not Resolved]
  - Memory impairment [Recovered/Resolved]
  - Herpes virus infection [Recovered/Resolved]
  - Migraine [Not Recovered/Not Resolved]
  - C-reactive protein increased [Recovering/Resolving]
  - Pruritus [Recovered/Resolved]
  - Sacroiliitis [Not Recovered/Not Resolved]
  - Meniscus injury [Recovered/Resolved]
  - Dyspnoea [Not Recovered/Not Resolved]
  - White blood cell count decreased [Not Recovered/Not Resolved]
  - Spinal stenosis [Not Recovered/Not Resolved]
  - Osteoarthritis [Not Recovered/Not Resolved]
  - Sleep disorder [Not Recovered/Not Resolved]
  - Joint arthroplasty [Recovered/Resolved]
  - Dizziness [Recovered/Resolved]
  - Terminal insomnia [Recovering/Resolving]
  - Urticaria [Recovered/Resolved]
  - Cholelithiasis [Recovered/Resolved]
  - Neuralgia [Recovered/Resolved]
  - Feeling abnormal [Not Recovered/Not Resolved]
  - Headache [Recovered/Resolved]
  - Multiple sclerosis [Not Recovered/Not Resolved]
  - Nausea [Recovered/Resolved]
  - Fatigue [Recovered/Resolved]
  - Infusion related reaction [Recovered/Resolved]

NARRATIVE: CASE EVENT DATE: 20180503
